FAERS Safety Report 7769518-8 (Version None)
Quarter: 2011Q3

REPORT INFORMATION
  Report Type: 
  Country: None (occurrence: None)
  Receive Date: 20110922
  Receipt Date: 20100727
  Transmission Date: 20111222
  Serious: No
  Sender: FDA-Public Use
  Company Number: US-ASTRAZENECA-2010SE34952

PATIENT
  Age: 60 Year
  Sex: Female
  Weight: 81.6 kg

DRUGS (2)
  1. SEROQUEL [Suspect]
     Route: 048
     Dates: start: 20100701
  2. SEROQUEL [Suspect]
     Indication: ANXIETY
     Route: 048
     Dates: end: 20080101

REACTIONS (2)
  - BLOOD TRIGLYCERIDES INCREASED [None]
  - LIVER FUNCTION TEST ABNORMAL [None]
